FAERS Safety Report 8454595-1 (Version None)
Quarter: 2012Q2

REPORT INFORMATION
  Report Type: 
  Country: None (occurrence: None)
  Receive Date: 20120621
  Receipt Date: 20120611
  Transmission Date: 20120825
  Serious: No
  Sender: FDA-Public Use
  Company Number: US-BIOGENIDEC-2012BI020636

PATIENT
  Sex: Female

DRUGS (2)
  1. AVONEX [Suspect]
     Indication: MULTIPLE SCLEROSIS
     Route: 030
     Dates: start: 20090331, end: 20120226
  2. AVONEX [Suspect]
     Route: 030
     Dates: start: 20080310, end: 20081210

REACTIONS (8)
  - MIGRAINE [None]
  - FALL [None]
  - DIARRHOEA [None]
  - HEADACHE [None]
  - MUSCULOSKELETAL STIFFNESS [None]
  - MUSCLE SPASMS [None]
  - NECK PAIN [None]
  - BALANCE DISORDER [None]
